FAERS Safety Report 6575640-4 (Version None)
Quarter: 2010Q1

REPORT INFORMATION
  Report Type: 
  Country: None (occurrence: None)
  Receive Date: 20100208
  Receipt Date: 20100208
  Transmission Date: 20100710
  Serious: Yes (Other)
  Sender: FDA-Public Use
  Company Number: None

PATIENT
  Age: 50 Year
  Sex: Female
  Weight: 100 kg

DRUGS (1)
  1. AMLODIPINE [Suspect]
     Indication: HYPERTENSION
     Dosage: 10MG QD PO ONE DOSE
     Route: 048
     Dates: start: 20100205, end: 20100205

REACTIONS (6)
  - DYSPHONIA [None]
  - EYE SWELLING [None]
  - LIP SWELLING [None]
  - PRODUCT SUBSTITUTION ISSUE [None]
  - RASH [None]
  - SWOLLEN TONGUE [None]
